FAERS Safety Report 15841513 (Version 15)
Quarter: 2024Q3

REPORT INFORMATION
  Report Type: Report from Study
  Country: DE (occurrence: DE)
  Receive Date: 20190118
  Receipt Date: 20240903
  Transmission Date: 20241017
  Serious: Yes (Hospitalization)
  Sender: ROCHE
  Company Number: DE-ROCHE-2131563

PATIENT
  Age: 40 Year
  Sex: Female
  Weight: 80 kg

DRUGS (13)
  1. OCREVUS [Suspect]
     Active Substance: OCRELIZUMAB
     Indication: Relapsing-remitting multiple sclerosis
     Dosage: SUBSEQUENT DOSE 600 MG 1 IN 161 DAYS
     Route: 042
     Dates: start: 20180412
  2. OCREVUS [Suspect]
     Active Substance: OCRELIZUMAB
     Route: 042
     Dates: start: 201810, end: 201810
  3. OCREVUS [Suspect]
     Active Substance: OCRELIZUMAB
     Dosage: SECOND MAINTENANCE DOSE
     Route: 042
     Dates: start: 20190418, end: 20190418
  4. OCREVUS [Suspect]
     Active Substance: OCRELIZUMAB
     Route: 042
     Dates: start: 20190926, end: 20190926
  5. OCREVUS [Suspect]
     Active Substance: OCRELIZUMAB
     Route: 042
     Dates: start: 20200514, end: 20200514
  6. OCREVUS [Suspect]
     Active Substance: OCRELIZUMAB
     Route: 042
     Dates: start: 20201112, end: 20201112
  7. OCREVUS [Suspect]
     Active Substance: OCRELIZUMAB
     Route: 042
     Dates: start: 20210624, end: 20210624
  8. DIMETHINDENE [Suspect]
     Active Substance: DIMETHINDENE
     Indication: Product used for unknown indication
     Route: 065
  9. COMIRNATY (TOZINAMERAN) [Suspect]
     Active Substance: TOZINAMERAN
     Indication: COVID-19 immunisation
     Route: 065
     Dates: start: 20210408
  10. DALFAMPRIDINE [Concomitant]
     Active Substance: DALFAMPRIDINE
  11. HYDROXYCHLOROQUINE [Concomitant]
     Active Substance: HYDROXYCHLOROQUINE
     Dosage: 200 MG IN THE MORNING, 200 MG IN THE EVENING
  12. DICLOFENAC [Concomitant]
     Active Substance: DICLOFENAC
     Dosage: IN THE EVENING
  13. TIZANIDINE HYDROCHLORIDE [Concomitant]
     Active Substance: TIZANIDINE HYDROCHLORIDE
     Dosage: 4 MG IN THE EVENING

REACTIONS (13)
  - Fatigue [Not Recovered/Not Resolved]
  - Nasopharyngitis [Recovered/Resolved]
  - Gait disturbance [Recovered/Resolved]
  - Drug ineffective [Unknown]
  - Arthralgia [Recovered/Resolved]
  - Weight increased [Not Recovered/Not Resolved]
  - Rash erythematous [Recovered/Resolved]
  - Multiple sclerosis [Unknown]
  - COVID-19 [Recovered/Resolved]
  - Throat irritation [Not Recovered/Not Resolved]
  - Cough [Not Recovered/Not Resolved]
  - Muscle spasticity [Recovered/Resolved]
  - Spinal pain [Not Recovered/Not Resolved]

NARRATIVE: CASE EVENT DATE: 20211201
